FAERS Safety Report 21764639 (Version 1)
Quarter: 2022Q4

REPORT INFORMATION
  Report Type: Spontaneous
  Country: US (occurrence: US)
  Receive Date: 20221222
  Receipt Date: 20221222
  Transmission Date: 20230112
  Serious: Yes (Other)
  Sender: FDA-Public Use
  Company Number: US-SA-SAC20221220001498

PATIENT
  Age: 61 Year
  Sex: Female
  Weight: 71 kg

DRUGS (6)
  1. KEVZARA [Suspect]
     Active Substance: SARILUMAB
     Indication: Rheumatoid arthritis
     Dosage: 200 MG, QOW
     Route: 058
     Dates: start: 20210630, end: 202209
  2. CALCIUM [Concomitant]
     Active Substance: CALCIUM
     Dosage: 600 MG
  3. ORENCIA [Concomitant]
     Active Substance: ABATACEPT
  4. TRI-BUFFERED ASPIRIN [Concomitant]
     Active Substance: ASPIRIN
  5. PREDNISONE [Concomitant]
     Active Substance: PREDNISONE
     Dosage: 325MG
  6. ASPIRIN [Concomitant]
     Active Substance: ASPIRIN

REACTIONS (1)
  - Diverticulitis [Unknown]

NARRATIVE: CASE EVENT DATE: 20220901
